FAERS Safety Report 10946263 (Version 1)
Quarter: 2015Q1

REPORT INFORMATION
  Report Type: Spontaneous
  Country: TR (occurrence: TR)
  Receive Date: 20150323
  Receipt Date: 20150323
  Transmission Date: 20150721
  Serious: Yes (Hospitalization)
  Sender: FDA-Public Use
  Company Number: TR-BAUSCH-BL-2015-009436

PATIENT
  Age: 27 Year
  Sex: Male

DRUGS (7)
  1. HIGH DOSE VITAMIN A [Suspect]
     Active Substance: VITAMIN A
     Indication: PNEUMONIA MEASLES
  2. MOXIFLOXACIN [Concomitant]
     Active Substance: MOXIFLOXACIN
     Route: 048
  3. HIGH DOSE VITAMIN A [Suspect]
     Active Substance: VITAMIN A
     Indication: PNEUMONITIS
  4. MOXIFLOXACIN [Concomitant]
     Active Substance: MOXIFLOXACIN
     Indication: H1N1 INFLUENZA
     Route: 048
  5. RIBAVIRIN. [Suspect]
     Active Substance: RIBAVIRIN
     Dosage: MAINTENANCE DOSE
     Route: 042
  6. OSELTAMIVIR [Concomitant]
     Active Substance: OSELTAMIVIR
     Indication: H1N1 INFLUENZA
     Route: 048
  7. RIBAVIRIN. [Suspect]
     Active Substance: RIBAVIRIN
     Indication: PNEUMONIA MEASLES
     Route: 042

REACTIONS (5)
  - Gamma-glutamyltransferase increased [None]
  - Alanine aminotransferase increased [None]
  - Blood bilirubin increased [Unknown]
  - Hepatic enzyme increased [Recovered/Resolved]
  - Aspartate aminotransferase increased [None]
